FAERS Safety Report 23011962 (Version 6)
Quarter: 2023Q4

REPORT INFORMATION
  Report Type: Spontaneous
  Country: US (occurrence: US)
  Receive Date: 20230929
  Receipt Date: 20231229
  Transmission Date: 20240110
  Serious: Yes (Hospitalization, Other)
  Sender: FDA-Public Use
  Company Number: US-Blueprint Medicines Corporation-1488

PATIENT
  Sex: Female

DRUGS (7)
  1. AYVAKIT [Suspect]
     Active Substance: AVAPRITINIB
     Indication: Systemic mastocytosis
     Route: 065
     Dates: start: 20230913
  2. AYVAKIT [Suspect]
     Active Substance: AVAPRITINIB
     Route: 065
     Dates: start: 20230913
  3. AYVAKIT [Suspect]
     Active Substance: AVAPRITINIB
     Route: 065
     Dates: start: 20230913
  4. AYVAKIT [Suspect]
     Active Substance: AVAPRITINIB
     Route: 065
     Dates: start: 20230913
  5. AYVAKIT [Suspect]
     Active Substance: AVAPRITINIB
     Route: 065
     Dates: start: 20230913
  6. VYVANSE [Concomitant]
     Active Substance: LISDEXAMFETAMINE DIMESYLATE
     Indication: Product used for unknown indication
     Route: 065
  7. LASIX [Concomitant]
     Active Substance: FUROSEMIDE
     Indication: Peripheral swelling
     Route: 065

REACTIONS (31)
  - Haemorrhage [Unknown]
  - Unevaluable event [Unknown]
  - Thyroid disorder [Recovered/Resolved]
  - Thrombocytopenia [Unknown]
  - Hypotension [Unknown]
  - Pain [Unknown]
  - Disease progression [Unknown]
  - Cytokine storm [Unknown]
  - Swelling face [Recovering/Resolving]
  - Face oedema [Recovering/Resolving]
  - Orbital oedema [Unknown]
  - Macule [Unknown]
  - Swelling [Unknown]
  - Illness [Unknown]
  - Eye contusion [Unknown]
  - Eye swelling [Unknown]
  - Contusion [Unknown]
  - Skin weeping [Unknown]
  - Peripheral swelling [Recovering/Resolving]
  - Feeling abnormal [Unknown]
  - Alopecia [Unknown]
  - Diarrhoea [Unknown]
  - Weight decreased [Unknown]
  - Condition aggravated [Unknown]
  - Hypervolaemia [Unknown]
  - Nausea [Unknown]
  - Sleep disorder [Unknown]
  - Gastrointestinal sounds abnormal [Unknown]
  - Flatulence [Unknown]
  - Anaemia [Unknown]
  - Intentional dose omission [Unknown]
